FAERS Safety Report 5592832-1 (Version None)
Quarter: 2008Q1

REPORT INFORMATION
  Report Type: 
  Country: None (occurrence: None)
  Receive Date: 20080114
  Receipt Date: 20080108
  Transmission Date: 20080703
  Serious: Yes (Death)
  Sender: FDA-Public Use
  Company Number: 163-21880-07120415

PATIENT
  Age: 79 Year
  Sex: Female

DRUGS (1)
  1. REVLIMID [Suspect]
     Indication: MYELODYSPLASTIC SYNDROME
     Dosage: 2.5 MG, 1 IN 2 D, ORAL
     Route: 048
     Dates: start: 20071121, end: 20071125

REACTIONS (1)
  - SEPSIS [None]
